FAERS Safety Report 16744935 (Version 2)
Quarter: 2019Q3

REPORT INFORMATION
  Report Type: Spontaneous
  Country: IN (occurrence: IN)
  Receive Date: 20190827
  Receipt Date: 20190830
  Transmission Date: 20191005
  Serious: Yes (Life-Threatening, Hospitalization, Other)
  Sender: FDA-Public Use
  Company Number: IN-SA-2019SA231059

PATIENT
  Sex: Male
  Weight: 2.8 kg

DRUGS (3)
  1. AMIKACIN. [Concomitant]
     Active Substance: AMIKACIN
     Indication: NEONATAL RESPIRATORY DISTRESS
     Route: 042
  2. CEFOTAXIME SODIUM [Suspect]
     Active Substance: CEFOTAXIME SODIUM
     Indication: NEONATAL RESPIRATORY DISTRESS
     Route: 042
  3. OXYGEN. [Concomitant]
     Active Substance: OXYGEN
     Indication: NEONATAL RESPIRATORY DISTRESS
     Dosage: OXYGEN INHALATION BY NASAL PRONGS
     Route: 055

REACTIONS (8)
  - Infantile vomiting [Recovered/Resolved]
  - Thrombocytopenia [Recovered/Resolved]
  - Sepsis neonatal [Recovered/Resolved]
  - Meningitis neonatal [Recovered/Resolved]
  - Necrotising enterocolitis neonatal [Recovered/Resolved]
  - Lethargy [Recovered/Resolved]
  - Abdominal distension [Recovered/Resolved]
  - Pneumatosis intestinalis [Recovered/Resolved]
